FAERS Safety Report 16253333 (Version 1)
Quarter: 2019Q2

REPORT INFORMATION
  Report Type: Report from Study
  Country: None (occurrence: US)
  Receive Date: 20190429
  Receipt Date: 20190429
  Transmission Date: 20190711
  Serious: Yes (Other)
  Sender: FDA-Public Use
  Company Number: US-ABBVIE-18K-163-2540157-00

PATIENT
  Sex: Female

DRUGS (1)
  1. HUMIRA [Suspect]
     Active Substance: ADALIMUMAB
     Indication: PSORIASIS
     Dosage: CITRATE FREE
     Route: 058

REACTIONS (12)
  - Pain [Unknown]
  - Muscular weakness [Unknown]
  - Injection site pain [Unknown]
  - Pain in extremity [Unknown]
  - Arthritis [Unknown]
  - Radiculopathy [Unknown]
  - Rheumatoid arthritis [Unknown]
  - Injection site nerve damage [Unknown]
  - Injection site mass [Unknown]
  - Abdominal pain upper [Unknown]
  - Spinal compression fracture [Unknown]
  - Fall [Unknown]
